FAERS Safety Report 7008534-0 (Version None)
Quarter: 2010Q3

REPORT INFORMATION
  Report Type: 
  Country: None (occurrence: None)
  Receive Date: 20100922
  Receipt Date: 20100826
  Transmission Date: 20110219
  Serious: No
  Sender: FDA-Public Use
  Company Number: US-PFIZER INC-2010053581

PATIENT
  Sex: Male
  Weight: 18.141 kg

DRUGS (2)
  1. ZITHROMAX [Suspect]
     Indication: PHARYNGITIS
     Dosage: 6 ML, UNK
     Route: 048
     Dates: start: 20100217, end: 20100220
  2. ZITHROMAX [Suspect]
     Indication: SINUSITIS

REACTIONS (1)
  - TINNITUS [None]
